FAERS Safety Report 6746601-7 (Version None)
Quarter: 2010Q2

REPORT INFORMATION
  Report Type: 
  Country: None (occurrence: None)
  Receive Date: 20100528
  Receipt Date: 20091130
  Transmission Date: 20101027
  Serious: Yes (Hospitalization)
  Sender: FDA-Public Use
  Company Number: US-ASTRAZENECA-2009SE27927

PATIENT
  Sex: Male

DRUGS (3)
  1. PRILOSEC OTC [Suspect]
     Dosage: BID
     Route: 048
     Dates: start: 20071101, end: 20080201
  2. PRILOSEC OTC [Suspect]
     Dosage: DAILY
     Route: 048
     Dates: start: 20080201, end: 20090101
  3. PLAVIX [Concomitant]
     Dates: start: 20040101

REACTIONS (1)
  - CHEST PAIN [None]
